FAERS Safety Report 4421035-9 (Version None)
Quarter: 2004Q3

REPORT INFORMATION
  Report Type: 
  Country: None (occurrence: None)
  Receive Date: 20040809
  Receipt Date: 20040728
  Transmission Date: 20050211
  Serious: Yes (Hospitalization)
  Sender: FDA-Public Use
  Company Number: CH-GLAXOSMITHKLINE-B0341584A

PATIENT
  Age: 38 Year
  Sex: Female

DRUGS (2)
  1. MALARONE [Suspect]
     Indication: MALARIA PROPHYLAXIS
     Route: 048
  2. DESOGESTREL AND ETHINYL ESTRADIOL [Concomitant]
     Indication: CONTRACEPTION
     Dosage: 1U PER DAY
     Route: 048

REACTIONS (5)
  - BLOOD IRON DECREASED [None]
  - DEEP VEIN THROMBOSIS [None]
  - HYPOCHROMIC ANAEMIA [None]
  - MICROCYTIC ANAEMIA [None]
  - PULMONARY EMBOLISM [None]
